FAERS Safety Report 9469471 (Version 2)
Quarter: 2013Q3

REPORT INFORMATION
  Report Type: Spontaneous
  Country: US (occurrence: US)
  Receive Date: 20130822
  Receipt Date: 20130902
  Transmission Date: 20140515
  Serious: Yes (Hospitalization, Other)
  Sender: FDA-Public Use
  Company Number: US-009507513-1308USA006372

PATIENT
  Age: 36 Year
  Sex: Female
  Weight: 69.84 kg

DRUGS (2)
  1. IMPLANON [Suspect]
     Dosage: UNK
     Route: 059
     Dates: start: 20110816
  2. IMPLANON [Suspect]
     Dosage: UNK
     Route: 059
     Dates: start: 20080911

REACTIONS (5)
  - Malaise [Unknown]
  - Central venous catheterisation [Unknown]
  - Staphylococcal infection [Recovered/Resolved]
  - Surgery [Unknown]
  - Medical device complication [Unknown]
